FAERS Safety Report 17144097 (Version 4)
Quarter: 2020Q3

REPORT INFORMATION
  Report Type: Spontaneous
  Country: US (occurrence: US)
  Receive Date: 20191211
  Receipt Date: 20200914
  Transmission Date: 20201102
  Serious: Yes (Other)
  Sender: FDA-Public Use
  Company Number: US-BIOGEN-2019BI00814795

PATIENT
  Sex: Female

DRUGS (1)
  1. TYSABRI [Suspect]
     Active Substance: NATALIZUMAB
     Indication: MULTIPLE SCLEROSIS
     Dosage: 15ML (300MG)
     Route: 042
     Dates: start: 20080626, end: 20191026

REACTIONS (3)
  - Complication associated with device [Unknown]
  - Poor venous access [Unknown]
  - Vena cava thrombosis [Unknown]
